FAERS Safety Report 12603588 (Version 1)
Quarter: 2016Q3

REPORT INFORMATION
  Report Type: Spontaneous
  Country: US (occurrence: US)
  Receive Date: 20160728
  Receipt Date: 20160728
  Transmission Date: 20161109
  Serious: Yes (Other)
  Sender: FDA-Public Use
  Company Number: US-KALEO, INC-2015SA180186

PATIENT
  Age: 44 Year
  Sex: Female

DRUGS (1)
  1. EPINEPHRINE. [Suspect]
     Active Substance: EPINEPHRINE
     Indication: HAEMORRHAGE
     Dosage: ENDOBRONCHIAL

REACTIONS (6)
  - Product use issue [Unknown]
  - Electrocardiogram ST segment elevation [Recovered/Resolved]
  - Bradycardia [Recovering/Resolving]
  - Arteriospasm coronary [Recovering/Resolving]
  - Hypotension [Recovering/Resolving]
  - Chest pain [Recovering/Resolving]
